FAERS Safety Report 9303119 (Version 2)
Quarter: 2013Q2

REPORT INFORMATION
  Report Type: Spontaneous
  Country: US (occurrence: US)
  Receive Date: 20130522
  Receipt Date: 20130626
  Transmission Date: 20140414
  Serious: Yes (Other)
  Sender: FDA-Public Use
  Company Number: US-PFIZER INC-2013157467

PATIENT
  Age: 61 Year
  Sex: Female
  Weight: 71.66 kg

DRUGS (17)
  1. LYRICA [Suspect]
     Indication: FIBROMYALGIA
     Dosage: 100 MG, 3X/DAY
     Route: 048
  2. LYRICA [Suspect]
     Indication: NEUROPATHY PERIPHERAL
     Dosage: 100 MG, 3X/DAY
     Route: 048
  3. XANAX [Concomitant]
     Dosage: UNK
  4. CLARITIN [Concomitant]
     Indication: HYPERSENSITIVITY
     Dosage: 5 MG, UNK
  5. SINGULAIR [Concomitant]
     Indication: ASTHMA
     Dosage: 10 MG, 1X/DAY
  6. PROMETHAZINE [Concomitant]
     Indication: NAUSEA
     Dosage: 25 MG, UNK
  7. PROTONIX [Concomitant]
     Dosage: 40 MG, 1X/DAY
  8. CELEXA [Concomitant]
     Dosage: UNK, 1X/DAY
  9. LASIX [Concomitant]
     Dosage: 20 MG, 1X/DAY
  10. ALDACTONE [Concomitant]
     Dosage: 25 MG, UNK
  11. BENADRYL [Concomitant]
     Dosage: UNK, 2X/DAY
  12. SYNTHROID [Concomitant]
     Dosage: 75 UG, 1X/DAY
  13. WELCHOL [Concomitant]
     Dosage: UNK
  14. LOVAZA [Concomitant]
     Dosage: UNK
  15. INDOMETHACIN [Concomitant]
     Dosage: 25 MG, 3X/DAY
  16. COLCHICINE [Concomitant]
     Dosage: 0.6 MG, UNK
  17. SEROQUEL [Concomitant]
     Dosage: UNK, 1X/DAY

REACTIONS (5)
  - Gout [Unknown]
  - Constipation [Unknown]
  - Gait disturbance [Unknown]
  - General physical health deterioration [Unknown]
  - Pain [Unknown]
